FAERS Safety Report 4908345-3 (Version None)
Quarter: 2006Q1

REPORT INFORMATION
  Report Type: 
  Country: None (occurrence: None)
  Receive Date: 20060210
  Receipt Date: 20051228
  Transmission Date: 20060701
  Serious: Yes (Hospitalization)
  Sender: FDA-Public Use
  Company Number: DE-ABBOTT-05P-062-0320913-00

PATIENT
  Sex: Female

DRUGS (21)
  1. HUMIRA [Suspect]
     Indication: RHEUMATOID ARTHRITIS
     Route: 058
     Dates: start: 20050201, end: 20050728
  2. METHOTREXATE SODIUM [Suspect]
     Indication: RHEUMATOID ARTHRITIS
     Dates: start: 19960501, end: 20050721
  3. METHOTREXATE SODIUM [Suspect]
     Dates: start: 20011001
  4. METHOTREXATE SODIUM [Suspect]
     Dates: start: 20011001
  5. METHOTREXATE SODIUM [Suspect]
     Dates: start: 20011001
  6. METHOTREXATE SODIUM [Suspect]
     Dates: start: 20031021
  7. METHOTREXATE SODIUM [Suspect]
  8. METHOTREXATE SODIUM [Suspect]
     Dates: start: 20041001
  9. ALENDRONATE SODIUM [Concomitant]
     Indication: DRUG USE FOR UNKNOWN INDICATION
  10. AMITRIPTYLINE HYDROCHLORIDE [Concomitant]
     Indication: DRUG USE FOR UNKNOWN INDICATION
  11. DICLO RETARD [Concomitant]
     Indication: DRUG USE FOR UNKNOWN INDICATION
     Route: 048
  12. INFLIXIMAB [Concomitant]
     Indication: DRUG USE FOR UNKNOWN INDICATION
     Dates: start: 20011030
  13. INFLIXIMAB [Concomitant]
     Dates: start: 20020131
  14. INFLIXIMAB [Concomitant]
     Dates: start: 20020426
  15. INFLIXIMAB [Concomitant]
     Dates: start: 20021101
  16. INFLIXIMAB [Concomitant]
     Dates: start: 20030429
  17. INFLIXIMAB [Concomitant]
     Dates: start: 20031021
  18. INFLIXIMAB [Concomitant]
     Dates: start: 20040414
  19. INFLIXIMAB [Concomitant]
     Dates: start: 20041027
  20. GOLD [Concomitant]
     Indication: DRUG USE FOR UNKNOWN INDICATION
     Dates: start: 20011001
  21. UNSPECIFIED CONTROL MEDICATION [Concomitant]
     Indication: DRUG USE FOR UNKNOWN INDICATION
     Dates: start: 20051024

REACTIONS (4)
  - ATELECTASIS [None]
  - BRONCHITIS CHRONIC [None]
  - PSEUDOPOLYP [None]
  - PULMONARY FIBROSIS [None]
